FAERS Safety Report 7400121-5 (Version None)
Quarter: 2011Q2

REPORT INFORMATION
  Report Type: 
  Country: None (occurrence: None)
  Receive Date: 20110407
  Receipt Date: 20101217
  Transmission Date: 20111010
  Serious: No
  Sender: FDA-Public Use
  Company Number: US-KINGPHARMUSA00001-K201001534

PATIENT
  Sex: Female
  Weight: 58.957 kg

DRUGS (2)
  1. SKELAXIN [Suspect]
     Indication: MUSCULOSKELETAL DISCOMFORT
     Dosage: 800 MG, BID PRN
     Route: 048
     Dates: start: 20101211, end: 20101215
  2. SKELAXIN [Suspect]
     Indication: MUSCLE SPASMS
     Dosage: 800 MG, ONE-HALF TABLET, SINGLE
     Dates: start: 20101210, end: 20101210

REACTIONS (8)
  - BLADDER SPASM [None]
  - DYSURIA [None]
  - URINE OUTPUT DECREASED [None]
  - ABDOMINAL TENDERNESS [None]
  - URINE ABNORMALITY [None]
  - CYSTITIS [None]
  - BLOOD URINE PRESENT [None]
  - HEADACHE [None]
